FAERS Safety Report 5642893-6 (Version None)
Quarter: 2008Q1

REPORT INFORMATION
  Report Type: 
  Country: None (occurrence: None)
  Receive Date: 20080228
  Receipt Date: 20080219
  Transmission Date: 20080703
  Serious: Yes (Other)
  Sender: FDA-Public Use
  Company Number: JP-JNJFOC-20071206176

PATIENT
  Sex: Male

DRUGS (12)
  1. FINIBAX [Suspect]
     Route: 041
  2. FINIBAX [Suspect]
     Route: 041
  3. FINIBAX [Suspect]
     Indication: PNEUMONIA
     Route: 041
  4. AMBISOME [Suspect]
     Indication: DRUG USE FOR UNKNOWN INDICATION
     Route: 065
  5. CIPROFLOXACIN [Suspect]
     Indication: DRUG USE FOR UNKNOWN INDICATION
     Route: 065
  6. VANCOMYCIN [Suspect]
     Indication: PNEUMONIA
     Route: 065
  7. FUNGUARD [Suspect]
     Indication: DRUG USE FOR UNKNOWN INDICATION
     Route: 065
  8. LEPETAN [Concomitant]
     Indication: SEDATION
     Route: 065
  9. ALBUMIN (HUMAN) [Concomitant]
     Route: 065
  10. REMINARION [Concomitant]
     Route: 065
  11. HANP [Concomitant]
     Route: 065
  12. DORMICUM [Concomitant]
     Indication: SEDATION
     Route: 065

REACTIONS (3)
  - ANAEMIA [None]
  - THROMBOCYTOPENIA [None]
  - WHITE BLOOD CELL COUNT DECREASED [None]
